FAERS Safety Report 7040219-7 (Version None)
Quarter: 2010Q4

REPORT INFORMATION
  Report Type: 
  Country: None (occurrence: None)
  Receive Date: 20101012
  Receipt Date: 20101006
  Transmission Date: 20110411
  Serious: Yes (Other)
  Sender: FDA-Public Use
  Company Number: US-JNJCH-2010022948

PATIENT
  Age: 80 Year
  Sex: Female
  Weight: 51.7 kg

DRUGS (1)
  1. LISTERINE WHITENING QUICK DISSOLVING STRIPS [Suspect]
     Indication: DENTAL CARE
     Dosage: TEXT:TWO STRIPS TWICE PER DAY
     Route: 048
     Dates: start: 20101001, end: 20101005

REACTIONS (6)
  - APPLICATION SITE PAIN [None]
  - BURNING SENSATION [None]
  - CHEILITIS [None]
  - EXPIRED DRUG ADMINISTERED [None]
  - LIP BLISTER [None]
  - PRODUCT QUALITY ISSUE [None]
